FAERS Safety Report 13473821 (Version 1)
Quarter: 2017Q2

REPORT INFORMATION
  Report Type: Spontaneous
  Country: US (occurrence: US)
  Receive Date: 20170424
  Receipt Date: 20170424
  Transmission Date: 20170830
  Serious: No
  Sender: FDA-Public Use
  Company Number: US-ARBOR PHARMACEUTICALS, LLC-US-2016ARB000582

PATIENT

DRUGS (1)
  1. EDARBI [Suspect]
     Active Substance: AZILSARTAN KAMEDOXOMIL
     Indication: HYPERTENSION
     Dosage: 20 MG, TAKE 1/2 TABLET BY MOUTH DAILY, DURATION: 6-7 MONTHS, PERHAPS LONGER
     Route: 048

REACTIONS (2)
  - Dizziness [Unknown]
  - Blood cholesterol increased [Unknown]
